FAERS Safety Report 7749420-8 (Version None)
Quarter: 2011Q3

REPORT INFORMATION
  Report Type: 
  Country: None (occurrence: None)
  Receive Date: 20110825
  Receipt Date: 20110623
  Transmission Date: 20111222
  Serious: No
  Sender: FDA-Public Use
  Company Number: 330793

PATIENT
  Sex: Female

DRUGS (1)
  1. VICTOZA [Suspect]
     Dosage: 1.2 MG, QD, SUBCUTANEOUS:TYPE 2 DIABETES MELLITUS (TYPE 2 DIABETES MELLITUS)
     Route: 058

REACTIONS (2)
  - DRUG LABEL CONFUSION [None]
  - INCORRECT DOSE ADMINISTERED [None]
